FAERS Safety Report 17022103 (Version 1)
Quarter: 2019Q4

REPORT INFORMATION
  Report Type: Spontaneous
  Country: US (occurrence: US)
  Receive Date: 20191112
  Receipt Date: 20191112
  Transmission Date: 20200122
  Serious: Yes (Other)
  Sender: FDA-Public Use
  Company Number: NVSC2019US032320

PATIENT
  Sex: Male
  Weight: 32 kg

DRUGS (1)
  1. KYMRIAH [Suspect]
     Active Substance: TISAGENLECLEUCEL
     Indication: ACUTE LYMPHOCYTIC LEUKAEMIA
     Dosage: 14 ML, ONCE/SINGLE
     Route: 042
     Dates: start: 20191023, end: 20191023

REACTIONS (1)
  - Neurotoxicity [Unknown]
